FAERS Safety Report 8579013 (Version 2)
Quarter: 2014Q1

REPORT INFORMATION
  Report Type: Spontaneous
  Country: US (occurrence: None)
  Receive Date: 20120323
  Receipt Date: 20130305
  Transmission Date: 20141002
  Serious: Yes (Hospitalization, Other)
  Sender: FDA-Public Use
  Company Number: 163-21880-11042435

PATIENT
  Age: 81 Year
  Sex: Female
  Weight: 69.9 kg

DRUGS (5)
  1. REVLIMID [Suspect]
     Indication: PLASMA CELL MYELOMA
     Dosage: 10 MG, 21 IN 28 D, PO
     Route: 048
     Dates: start: 20110218, end: 201105
  2. METFORMIN [Concomitant]
  3. ATENOLOL [Concomitant]
  4. ACTOS (PIOGLITAZONE HYDROCHLORIDE) [Concomitant]
  5. COUMADIN (WARFARIN SODIUM) [Concomitant]

REACTIONS (5)
  - Full blood count decreased [None]
  - Anaemia [None]
  - Fatigue [None]
  - White blood cell count decreased [None]
  - Rectal haemorrhage [None]
